FAERS Safety Report 15524809 (Version 7)
Quarter: 2020Q4

REPORT INFORMATION
  Report Type: Spontaneous
  Country: HU (occurrence: HU)
  Receive Date: 20181019
  Receipt Date: 20201211
  Transmission Date: 20210113
  Serious: Yes (Death, Life-Threatening, Hospitalization, Other)
  Sender: FDA-Public Use
  Company Number: HU-ALLERGAN-1849893US

PATIENT
  Sex: Male

DRUGS (24)
  1. FIDAXOMICIN [Suspect]
     Active Substance: FIDAXOMICIN
     Indication: CLOSTRIDIUM DIFFICILE INFECTION
     Dosage: 200 MG, BID
     Route: 065
  2. SULFAMETHOXAZOLE AND TRIMETHOPRIM [Suspect]
     Active Substance: SULFAMETHOXAZOLE\TRIMETHOPRIM
     Indication: CITROBACTER INFECTION
     Dosage: 400/80 MG
     Route: 048
  3. MEROPENEM. [Suspect]
     Active Substance: MEROPENEM
     Indication: PNEUMONIA KLEBSIELLA
     Dosage: 1 G, BID
     Route: 042
  4. METRONIDAZOLE. [Suspect]
     Active Substance: METRONIDAZOLE
     Indication: INFLAMMATION
  5. GENTAMYCIN [Suspect]
     Active Substance: GENTAMICIN
     Indication: ENTEROBACTER INFECTION
  6. IMIPENEM AND CILASTATIN [Suspect]
     Active Substance: CILASTATIN SODIUM\IMIPENEM
     Indication: RENAL IMPAIRMENT
     Dosage: 500 MG, QID
     Route: 042
  7. CEFTAZIDIME. [Suspect]
     Active Substance: CEFTAZIDIME
     Indication: ENTEROBACTER INFECTION
  8. AMOXICILLIN TRIHYDRATE W/CLAVULANIC ACID [Suspect]
     Active Substance: AMOXICILLIN\CLAVULANIC ACID
     Indication: INFLAMMATION
  9. METRONIDAZOLE. [Suspect]
     Active Substance: METRONIDAZOLE
     Indication: PROPHYLAXIS
     Dosage: 100 ML, TID
     Route: 042
  10. CEFUROXIM [Suspect]
     Active Substance: CEFUROXIME
     Indication: INFLAMMATION
  11. CEFTAZIDIME;AVIBACTAM - BP [Suspect]
     Active Substance: AVIBACTAM SODIUM\CEFTAZIDIME
     Indication: PNEUMONIA KLEBSIELLA
     Dosage: 2.5 G, TID
     Route: 042
     Dates: start: 20180707, end: 20180713
  12. CEFTAZIDIME;AVIBACTAM - BP [Suspect]
     Active Substance: AVIBACTAM SODIUM\CEFTAZIDIME
     Indication: ABDOMINAL INFECTION
  13. METRONIDAZOLE. [Suspect]
     Active Substance: METRONIDAZOLE
     Indication: CLOSTRIDIUM DIFFICILE INFECTION
  14. GENTAMYCIN [Suspect]
     Active Substance: GENTAMICIN
     Indication: PSEUDOMONAS INFECTION
     Dosage: 160 MG, QD
     Route: 042
  15. CEFTAZIDIME;AVIBACTAM - BP [Suspect]
     Active Substance: AVIBACTAM SODIUM\CEFTAZIDIME
     Indication: SEPSIS
  16. CEFTAZIDIME. [Suspect]
     Active Substance: CEFTAZIDIME
     Indication: ENTEROBACTER TEST POSITIVE
  17. PIPERACILLIN AND TAZOBACTAM [Suspect]
     Active Substance: PIPERACILLIN SODIUM\TAZOBACTAM SODIUM
     Indication: ANTIBIOTIC THERAPY
     Dosage: 4.5 G, QID
     Route: 042
  18. AMOXICILLIN TRIHYDRATE W/CLAVULANIC ACID [Suspect]
     Active Substance: AMOXICILLIN\CLAVULANIC ACID
     Indication: PROPHYLAXIS
     Dosage: 1.2 G, TID
     Route: 042
  19. VANCOMYCIN [Suspect]
     Active Substance: VANCOMYCIN
     Indication: CLOSTRIDIUM DIFFICILE INFECTION
     Dosage: 125 MG, QID
     Route: 048
  20. CEFUROXIM [Suspect]
     Active Substance: CEFUROXIME
     Indication: ESCHERICHIA INFECTION
     Dosage: 1.5 G, TID
     Route: 042
  21. IMIPENEM AND CILASTATIN [Suspect]
     Active Substance: CILASTATIN SODIUM\IMIPENEM
     Indication: ENTEROCOCCAL INFECTION
     Dosage: 500 MG, BID
     Route: 042
  22. FOSFOMYCIN TROMETHAMINE UNK [Suspect]
     Active Substance: FOSFOMYCIN TROMETHAMINE
     Indication: PNEUMONIA KLEBSIELLA
     Dosage: 3 G, QD
     Route: 048
  23. CEFTAZIDIME. [Suspect]
     Active Substance: CEFTAZIDIME
     Indication: PSEUDOMONAS INFECTION
     Dosage: 2 G, TID
     Route: 042
  24. GENTAMYCIN [Suspect]
     Active Substance: GENTAMICIN
     Indication: ENTEROBACTER INFECTION

REACTIONS (15)
  - Sepsis [Fatal]
  - Diarrhoea [Unknown]
  - Pyrexia [Unknown]
  - Clostridium difficile infection [Not Recovered/Not Resolved]
  - Malaise [Unknown]
  - Septic shock [Fatal]
  - Chest pain [Unknown]
  - Hypoxia [Unknown]
  - Gastroenteritis [Unknown]
  - Melaena [Unknown]
  - Chills [Unknown]
  - Drug resistance [Unknown]
  - Pathogen resistance [Fatal]
  - Respiratory failure [Unknown]
  - Dyspnoea [Unknown]

NARRATIVE: CASE EVENT DATE: 20180718
